FAERS Safety Report 8758664 (Version 1)
Quarter: 2012Q4

REPORT INFORMATION
  Report Type: 
  Country: US (occurrence: US)
  Receive Date: 20120829
  Receipt Date: 20120829
  Transmission Date: 20130627
  Serious: No
  Sender: FDA-Public Use
  Company Number: US-JNJFOC-20120813598

PATIENT
  Age: 26 Year
  Sex: Female

DRUGS (2)
  1. INVEGA [Suspect]
     Indication: SCHIZOPHRENIA
     Route: 048
  2. AN UNKNOWN MEDICATION [Concomitant]
     Indication: THYROID DISORDER
     Route: 048

REACTIONS (1)
  - Treatment noncompliance [Unknown]
